FAERS Safety Report 20602700 (Version 1)
Quarter: 2022Q1

REPORT INFORMATION
  Report Type: Spontaneous
  Country: US (occurrence: US)
  Receive Date: 20220316
  Receipt Date: 20220316
  Transmission Date: 20220423
  Serious: Yes (Other)
  Sender: FDA-Public Use
  Company Number: US-MYLANLABS-2022M1019890

PATIENT
  Age: 15 Year
  Sex: Female

DRUGS (2)
  1. SERTRALINE [Suspect]
     Active Substance: SERTRALINE HYDROCHLORIDE
     Indication: Anxiety
     Dosage: UNK
     Route: 065
  2. FLUCONAZOLE [Concomitant]
     Active Substance: FLUCONAZOLE
     Indication: Oesophageal candidiasis
     Dosage: UNK
     Route: 048

REACTIONS (4)
  - Head discomfort [Unknown]
  - Oral pain [Unknown]
  - Swelling [Unknown]
  - Neck pain [Unknown]
